FAERS Safety Report 5957491-4 (Version None)
Quarter: 2008Q4

REPORT INFORMATION
  Report Type: 
  Country: None (occurrence: None)
  Receive Date: 20081114
  Receipt Date: 20081105
  Transmission Date: 20090506
  Serious: Yes (Hospitalization)
  Sender: FDA-Public Use
  Company Number: 231490K08USA

PATIENT
  Age: 62 Year
  Sex: Female

DRUGS (5)
  1. REBIF [Suspect]
     Indication: MULTIPLE SCLEROSIS
     Dosage: 44 MCG, 3 IN 1 WEEKS, SUBCUTANEOUS
     Route: 058
     Dates: start: 20040101
  2. HYDROCHLOROTHIAZIDE (HYROCHLOROTHIAZIDE) [Concomitant]
  3. GLIPIZIDE [Concomitant]
  4. NEURONTIN [Concomitant]
  5. UNSPECIFIED MUSCLE RELAXANT (MUSCLE RELAXANTS) [Concomitant]

REACTIONS (10)
  - ABASIA [None]
  - DIARRHOEA [None]
  - INJECTION SITE ERYTHEMA [None]
  - INJECTION SITE PRURITUS [None]
  - INJECTION SITE REACTION [None]
  - LOSS OF CONTROL OF LEGS [None]
  - MUSCULAR WEAKNESS [None]
  - OROPHARYNGEAL PAIN [None]
  - PNEUMONIA [None]
  - URINARY TRACT INFECTION [None]
